FAERS Safety Report 9283896 (Version 2)
Quarter: 2013Q3

REPORT INFORMATION
  Report Type: Spontaneous
  Country: US (occurrence: US)
  Receive Date: 20130510
  Receipt Date: 20130731
  Transmission Date: 20140515
  Serious: Yes (Hospitalization)
  Sender: FDA-Public Use
  Company Number: US-BAYER-2013-056763

PATIENT
  Age: 49 Year
  Sex: Female
  Weight: 111 kg

DRUGS (20)
  1. YASMIN [Suspect]
     Dosage: UNK
     Dates: start: 2006, end: 201201
  2. OCELLA [Suspect]
     Dosage: UNK
     Dates: start: 2006, end: 201201
  3. DIOVAN [Concomitant]
     Indication: HYPERTENSION
     Dosage: UNK
     Dates: start: 2006, end: 2012
  4. LEVOTHYROXINE [Concomitant]
  5. VERAPAMIL [Concomitant]
     Indication: HYPERTENSION
     Dosage: UNK
     Dates: start: 2006, end: 2012
  6. THEOPHYLLINE [Concomitant]
     Indication: ASTHMA
  7. SPIRIVA [Concomitant]
     Indication: ASTHMA
     Dosage: UNK
     Dates: start: 2009
  8. PROAIR HFA [Concomitant]
     Indication: ASTHMA
     Dosage: UNK
     Dates: start: 2002
  9. ADVAIR [Concomitant]
     Indication: ASTHMA
     Dosage: UNK
     Dates: start: 2002
  10. SINGULAIR [Concomitant]
     Indication: ASTHMA
     Dosage: UNK
     Dates: start: 2007
  11. CHERATUSSIN AC [Concomitant]
  12. CALAN SLOW RELEASE [Concomitant]
  13. OMEPRAZOLE [Concomitant]
  14. CYMBALTA [Concomitant]
  15. CARAFATE [Concomitant]
  16. CITALOPRAM HYDROBROMIDE [Concomitant]
  17. SEROQUEL [Concomitant]
  18. INDOMETHACIN [Concomitant]
  19. DEPO MEDROL [Concomitant]
  20. LEVAQUIN [Concomitant]

REACTIONS (7)
  - Pulmonary embolism [None]
  - Injury [None]
  - Pain [None]
  - General physical health deterioration [None]
  - Emotional distress [None]
  - Anxiety [None]
  - Pain [None]
